FAERS Safety Report 11881735 (Version 2)
Quarter: 2016Q1

REPORT INFORMATION
  Report Type: Spontaneous
  Country: US (occurrence: US)
  Receive Date: 20151231
  Receipt Date: 20160106
  Transmission Date: 20160526
  Serious: Yes (Hospitalization)
  Sender: FDA-Public Use
  Company Number: US-UNITED THERAPEUTICS-UNT-2015-015745

PATIENT
  Age: 45 Year
  Sex: Male
  Weight: 101.59 kg

DRUGS (3)
  1. REMODULIN [Suspect]
     Active Substance: TREPROSTINIL
     Indication: PULMONARY ARTERIAL HYPERTENSION
     Dosage: 0.120 ?G/KG, CONTINUING
     Route: 041
     Dates: start: 20151202
  2. REVATIO [Concomitant]
     Active Substance: SILDENAFIL CITRATE
     Indication: PRODUCT USED FOR UNKNOWN INDICATION
     Dosage: UNK
  3. WARFARIN [Concomitant]
     Active Substance: WARFARIN
     Indication: PRODUCT USED FOR UNKNOWN INDICATION

REACTIONS (10)
  - Pain in jaw [Unknown]
  - Myalgia [Unknown]
  - Pain [Unknown]
  - Retching [Unknown]
  - Drug intolerance [Unknown]
  - Adverse event [Unknown]
  - Migraine [Unknown]
  - Headache [Unknown]
  - Insomnia [Unknown]
  - Vomiting [Unknown]

NARRATIVE: CASE EVENT DATE: 201512
